FAERS Safety Report 9116118 (Version 1)
Quarter: 2013Q1

REPORT INFORMATION
  Report Type: Spontaneous
  Country: HU (occurrence: HU)
  Receive Date: 20130225
  Receipt Date: 20130225
  Transmission Date: 20140127
  Serious: Yes (Hospitalization, Other)
  Sender: FDA-Public Use
  Company Number: HU-ELI_LILLY_AND_COMPANY-HU201301004672

PATIENT
  Age: 64 Year
  Sex: Female

DRUGS (5)
  1. ZYPADHERA [Suspect]
     Indication: SCHIZOPHRENIA
     Dosage: 300 MG, 2/M
     Route: 030
     Dates: start: 201105, end: 20130113
  2. ZYPREXA [Suspect]
  3. NEUROTOP [Concomitant]
     Dosage: 300 MG, BID
  4. RIVOTRIL [Concomitant]
     Dosage: 2 MG, TID
  5. LITOCARB [Concomitant]
     Dosage: 500 MG, BID

REACTIONS (7)
  - Somnolence [Recovered/Resolved]
  - Disorientation [Recovered/Resolved]
  - Dysarthria [Recovered/Resolved]
  - Movement disorder [Recovered/Resolved]
  - Ataxia [Recovered/Resolved]
  - Confusional state [Recovered/Resolved]
  - Hyperhidrosis [Recovered/Resolved]
